FAERS Safety Report 7797014-0 (Version None)
Quarter: 2011Q4

REPORT INFORMATION
  Report Type: 
  Country: None (occurrence: None)
  Receive Date: 20111005
  Receipt Date: 20110929
  Transmission Date: 20120403
  Serious: Yes (Death)
  Sender: FDA-Public Use
  Company Number: US-SANOFI-AVENTIS-2011SA063885

PATIENT
  Age: 71 Year
  Sex: Male

DRUGS (5)
  1. JEVTANA KIT [Suspect]
     Route: 041
     Dates: start: 20101025, end: 20101025
  2. NEUPOGEN [Concomitant]
     Dates: start: 20101025, end: 20101025
  3. JEVTANA KIT [Suspect]
     Indication: PROSTATE CANCER
     Route: 041
     Dates: start: 20101003, end: 20101003
  4. HORMONES AND RELATED AGENTS [Concomitant]
     Indication: PROSTATE CANCER
     Dates: start: 20100101, end: 20100101
  5. NEUPOGEN [Concomitant]
     Dates: start: 20101003, end: 20101003

REACTIONS (1)
  - DEATH [None]
